FAERS Safety Report 9637894 (Version 1)
Quarter: 2013Q4

REPORT INFORMATION
  Report Type: Spontaneous
  Country: US (occurrence: US)
  Receive Date: 20131022
  Receipt Date: 20131022
  Transmission Date: 20140711
  Serious: No
  Sender: FDA-Public Use
  Company Number: US-B.I. PHARMACEUTICALS,INC./RIDGEFIELD-2013-BI-31184BP

PATIENT
  Sex: Male

DRUGS (3)
  1. GILOTRIF [Suspect]
     Indication: LUNG CARCINOMA CELL TYPE UNSPECIFIED STAGE 0
     Dosage: 40 MG
     Route: 048
     Dates: start: 20130912
  2. PROCHLORAPERAZINE [Concomitant]
     Indication: NAUSEA
  3. ONDANSETRON [Concomitant]
     Indication: NAUSEA

REACTIONS (2)
  - Skin exfoliation [Unknown]
  - Nausea [Unknown]
